FAERS Safety Report 8384165-5 (Version None)
Quarter: 2012Q1

REPORT INFORMATION
  Report Type: 
  Country: None (occurrence: None)
  Receive Date: 20120323
  Receipt Date: 20110303
  Transmission Date: 20120608
  Serious: Yes (Other)
  Sender: FDA-Public Use
  Company Number: 163-21880-11030920

PATIENT
  Age: 76 Year
  Sex: Female
  Weight: 49.8957 kg

DRUGS (7)
  1. HYDROCHLOROTHIAZIDE [Concomitant]
  2. BENICAR [Concomitant]
  3. WARFARIN SODIUM [Concomitant]
  4. ARICEPT [Concomitant]
  5. PROVERA [Concomitant]
  6. REVLIMID [Suspect]
     Indication: MYELODYSPLASTIC SYNDROME
     Dosage: 5 MG, 1 IN 1 D, PO
     Route: 048
     Dates: start: 20100301
  7. VITAMIN D [Concomitant]

REACTIONS (1)
  - THROMBOSIS [None]
